FAERS Safety Report 8308501 (Version 2)
Quarter: 2012Q4

REPORT INFORMATION
  Report Type: 
  Country: US (occurrence: US)
  Receive Date: 20111222
  Receipt Date: 20121214
  Transmission Date: 20130627
  Serious: No
  Sender: FDA-Public Use
  Company Number: US-GLAXOSMITHKLINE-A0941724A

PATIENT
  Age: 68 Year
  Sex: Male

DRUGS (2)
  1. AVODART [Suspect]
     Indication: PROSTATIC SPECIFIC ANTIGEN INCREASED
     Dosage: .5MG Per day
     Route: 048
     Dates: start: 2010
  2. SIMVASTATIN [Concomitant]

REACTIONS (2)
  - Prostatic specific antigen increased [Not Recovered/Not Resolved]
  - Product quality issue [Unknown]
